FAERS Safety Report 4341769-4 (Version None)
Quarter: 2004Q2

REPORT INFORMATION
  Report Type: 
  Country: None (occurrence: None)
  Receive Date: 20040415
  Receipt Date: 20040329
  Transmission Date: 20050107
  Serious: Yes (Other)
  Sender: FDA-Public Use
  Company Number: USA030229132

PATIENT
  Age: 78 Year
  Sex: Female
  Weight: 68 kg

DRUGS (10)
  1. FORTEO [Suspect]
     Indication: OSTEOPOROSIS
     Dosage: 20 UG/1 DAY
     Dates: start: 20030108, end: 20040308
  2. ACIPHEX [Concomitant]
  3. CALCIUM [Concomitant]
  4. CORGARD [Concomitant]
  5. LISINOPRRIL [Concomitant]
  6. NORVASC [Concomitant]
  7. SYNTHROID [Concomitant]
  8. TRAZADONE (TRAZODONE) [Concomitant]
  9. VITAMIN B-12 [Concomitant]
  10. IRON [Concomitant]

REACTIONS (3)
  - DRY MOUTH [None]
  - GLOMERULONEPHRITIS RAPIDLY PROGRESSIVE [None]
  - LIP DRY [None]
